FAERS Safety Report 4922547-1 (Version None)
Quarter: 2006Q1

REPORT INFORMATION
  Report Type: 
  Country: None (occurrence: None)
  Receive Date: 20060224
  Receipt Date: 20051201
  Transmission Date: 20060701
  Serious: Yes (Life-Threatening, Other)
  Sender: FDA-Public Use
  Company Number: US-GLAXOSMITHKLINE-A0584282A

PATIENT
  Age: 28 Year
  Sex: Female
  Weight: 101.8 kg

DRUGS (6)
  1. WELLBUTRIN XL [Suspect]
     Indication: DRUG USE FOR UNKNOWN INDICATION
     Dosage: 150MG PER DAY
     Route: 048
     Dates: start: 20051020, end: 20051129
  2. REYATAZ [Suspect]
     Dates: start: 20041101
  3. TRUVADA [Suspect]
     Dates: start: 20050524
  4. NORVIR [Concomitant]
     Dates: start: 20041101
  5. DEPO-PROVERA [Concomitant]
     Dosage: 150MG SEE DOSAGE TEXT
     Route: 030
     Dates: start: 20051020
  6. NSAIDS [Concomitant]

REACTIONS (10)
  - BLOOD ALKALINE PHOSPHATASE INCREASED [None]
  - BLOOD BILIRUBIN UNCONJUGATED INCREASED [None]
  - CONJUNCTIVAL OEDEMA [None]
  - DRUG INTERACTION [None]
  - DYSPNOEA [None]
  - ORAL MUCOSAL BLISTERING [None]
  - RASH MACULO-PAPULAR [None]
  - SKIN DISCOLOURATION [None]
  - STEVENS-JOHNSON SYNDROME [None]
  - TONGUE BLISTERING [None]
